FAERS Safety Report 24925945 (Version 1)
Quarter: 2025Q1

REPORT INFORMATION
  Report Type: Spontaneous
  Country: FR (occurrence: FR)
  Receive Date: 20250205
  Receipt Date: 20250205
  Transmission Date: 20250408
  Serious: Yes (Hospitalization, Other)
  Sender: ABBVIE
  Company Number: None

PATIENT
  Sex: Male
  Weight: 3 kg

DRUGS (4)
  1. CITALOPRAM HYDROBROMIDE [Suspect]
     Active Substance: CITALOPRAM HYDROBROMIDE
     Indication: Maternal exposure timing unspecified
     Dosage: 20 MILLIGRAM
     Route: 064
  2. FLUTICASONE FUROATE [Suspect]
     Active Substance: FLUTICASONE FUROATE
     Indication: Maternal exposure timing unspecified
     Dosage: 1 DOSAGE FORM
     Route: 064
  3. EBASTINE [Suspect]
     Active Substance: EBASTINE
     Indication: Maternal exposure timing unspecified
     Dosage: 5 MILLIGRAM
     Route: 064
  4. FLUTICASONE PROPIONATE [Suspect]
     Active Substance: FLUTICASONE PROPIONATE
     Indication: Maternal exposure timing unspecified
     Dosage: 500 MICROGRAM
     Route: 064

REACTIONS (4)
  - Pneumothorax [Recovered/Resolved]
  - Respiratory distress [Recovered/Resolved]
  - Foetal exposure during pregnancy [Unknown]
  - Somnolence [Recovered/Resolved]
